FAERS Safety Report 14261967 (Version 2)
Quarter: 2017Q4

REPORT INFORMATION
  Report Type: Spontaneous
  Country: GB (occurrence: GB)
  Receive Date: 20171208
  Receipt Date: 20171213
  Transmission Date: 20180321
  Serious: Yes (Death, Other)
  Sender: FDA-Public Use
  Company Number: GB-PFIZER INC-2017521487

PATIENT
  Age: 92 Year
  Sex: Male

DRUGS (3)
  1. VORICONAZOLE. [Suspect]
     Active Substance: VORICONAZOLE
     Indication: BACTERIAL INFECTION
     Dosage: 200 MG, 2X/DAY
     Route: 048
  2. PIPERACILLIN/TAZOBACTAM [Concomitant]
     Active Substance: PIPERACILLIN SODIUM\TAZOBACTAM SODIUM
     Indication: BACTERIAL INFECTION
     Dosage: UNK
     Route: 042
  3. DEXAMETHASONE. [Concomitant]
     Active Substance: DEXAMETHASONE
     Indication: PROSTATE CANCER METASTATIC
     Dosage: 2 MG, 1X/DAY

REACTIONS (3)
  - Neurotoxicity [Unknown]
  - Drug level increased [Unknown]
  - Drug effect incomplete [Fatal]
